FAERS Safety Report 5381613-X (Version None)
Quarter: 2007Q2

REPORT INFORMATION
  Report Type: 
  Country: None (occurrence: None)
  Receive Date: 20070629
  Receipt Date: 20070503
  Transmission Date: 20071010
  Serious: Yes (Other)
  Sender: FDA-Public Use
  Company Number: 2007020296

PATIENT
  Age: 48 Year
  Sex: Female
  Weight: 56.7 kg

DRUGS (4)
  1. SERTRALINE [Suspect]
     Dates: start: 20070209
  2. ALEVE [Suspect]
     Indication: BACK PAIN
     Dosage: 220 MG; ORAL
     Route: 048
     Dates: start: 20070210
  3. ZOCOR [Suspect]
     Dates: start: 20070209
  4. TOPAMAX [Suspect]
     Dates: start: 20070209

REACTIONS (1)
  - ANAPHYLACTIC REACTION [None]
